FAERS Safety Report 8274111-7 (Version None)
Quarter: 2012Q2

REPORT INFORMATION
  Report Type: 
  Country: None (occurrence: None)
  Receive Date: 20120411
  Receipt Date: 20120405
  Transmission Date: 20120825
  Serious: Yes (Hospitalization, Other)
  Sender: FDA-Public Use
  Company Number: GB-PFIZER INC-2012086000

PATIENT
  Age: 22 Year
  Sex: Male

DRUGS (1)
  1. DOXYCYCLINE [Suspect]
     Indication: ACNE
     Dosage: 100 MG UNIT DOSE
     Route: 048

REACTIONS (3)
  - OESOPHAGEAL ULCER [None]
  - BURN OESOPHAGEAL [None]
  - FOREIGN BODY [None]
